FAERS Safety Report 4744873-1 (Version None)
Quarter: 2005Q3

REPORT INFORMATION
  Report Type: 
  Country: None (occurrence: None)
  Receive Date: 20050815
  Receipt Date: 20050811
  Transmission Date: 20060218
  Serious: Yes (Hospitalization)
  Sender: FDA-Public Use
  Company Number: PT-GLAXOSMITHKLINE-B0390570A

PATIENT
  Age: 11 Year
  Sex: Female
  Weight: 40 kg

DRUGS (1)
  1. ZOREF [Suspect]
     Dosage: 500MG TWICE PER DAY
     Route: 048
     Dates: start: 20050722, end: 20050724

REACTIONS (4)
  - DYSPHAGIA [None]
  - DYSPNOEA [None]
  - FACE OEDEMA [None]
  - LOCALISED OEDEMA [None]
